FAERS Safety Report 4519253-4 (Version None)
Quarter: 2004Q4

REPORT INFORMATION
  Report Type: 
  Country: None (occurrence: None)
  Receive Date: 20041201
  Receipt Date: 20041122
  Transmission Date: 20050328
  Serious: Yes (Other)
  Sender: FDA-Public Use
  Company Number: 2004024794

PATIENT
  Age: 73 Year
  Sex: Male
  Weight: 77 kg

DRUGS (5)
  1. QUINAPRIL HCL [Suspect]
     Indication: HYPERTENSION
     Dosage: 40 MG (20 MG, 2 IN 1 D), ORAL
     Route: 048
     Dates: start: 20010828
  2. ACETYLSALICYLIC ACID (ACTEYLSALICYLIC ACID) [Concomitant]
  3. ATORVASTATIN (ATORVASTATIN) [Concomitant]
  4. METOPROLOL TARTRATE [Concomitant]
  5. FELODIPINE [Concomitant]

REACTIONS (1)
  - PROSTATE CANCER [None]
